FAERS Safety Report 8387923-6 (Version None)
Quarter: 2012Q2

REPORT INFORMATION
  Report Type: 
  Country: None (occurrence: None)
  Receive Date: 20120525
  Receipt Date: 20120521
  Transmission Date: 20120825
  Serious: Yes (Hospitalization)
  Sender: FDA-Public Use
  Company Number: US-MERCK-1106USA02214

PATIENT
  Age: 75 Year
  Sex: Female
  Weight: 69 kg

DRUGS (10)
  1. FOSAMAX [Suspect]
     Indication: OSTEOPOROSIS
     Route: 048
     Dates: start: 20010129, end: 20091011
  2. ALENDRONATE SODIUM [Suspect]
     Indication: OSTEOPOROSIS
     Route: 065
     Dates: start: 20080728
  3. FOSAMAX [Suspect]
     Route: 048
     Dates: start: 20080507
  4. FOSAMAX [Suspect]
     Indication: OSTEOPENIA
     Route: 048
     Dates: start: 20010129, end: 20091011
  5. FOSAMAX [Suspect]
     Route: 048
     Dates: start: 20080507
  6. LISINOPRIL [Concomitant]
     Route: 048
     Dates: start: 20010101
  7. RALOXIFENE HYDROCHLORIDE [Concomitant]
     Indication: OSTEOPOROSIS
     Route: 048
     Dates: start: 20010101
  8. CALCIUM (UNSPECIFIED) [Concomitant]
     Route: 065
  9. ATENOLOL [Concomitant]
     Route: 048
     Dates: start: 20010101
  10. ALENDRONATE SODIUM [Suspect]
     Indication: OSTEOPENIA
     Route: 065
     Dates: start: 20080728

REACTIONS (16)
  - FALL [None]
  - FEMUR FRACTURE [None]
  - TOOTH LOSS [None]
  - WEIGHT INCREASED [None]
  - COUGH [None]
  - ORAL DISORDER [None]
  - DIVERTICULUM [None]
  - ABDOMINAL DISCOMFORT [None]
  - NEPHROLITHIASIS [None]
  - CALCIUM DEFICIENCY [None]
  - TOOTH DISORDER [None]
  - HYPERCHOLESTEROLAEMIA [None]
  - HYPERPARATHYROIDISM SECONDARY [None]
  - VITAMIN D DEFICIENCY [None]
  - MIGRAINE [None]
  - HAEMORRHOIDS [None]
